FAERS Safety Report 4557872-X (Version None)
Quarter: 2005Q1

REPORT INFORMATION
  Report Type: 
  Country: None (occurrence: None)
  Receive Date: 20050121
  Receipt Date: 20030107
  Transmission Date: 20050727
  Serious: No
  Sender: FDA-Public Use
  Company Number: US-BRISTOL-MYERS SQUIBB COMPANY-12153417

PATIENT
  Sex: Male

DRUGS (9)
  1. SERZONE [Suspect]
     Indication: POST-TRAUMATIC STRESS DISORDER
     Route: 048
     Dates: start: 20010101, end: 20020501
  2. TEMAZEPAM [Concomitant]
     Route: 048
  3. HYDROCHLOROTHIAZIDE [Concomitant]
  4. FLUOXETINE HCL [Concomitant]
  5. NAPROXEN [Concomitant]
  6. GABAPENTIN [Concomitant]
  7. ATENOLOL [Concomitant]
     Route: 048
  8. TRAMADOL HCL [Concomitant]
  9. CYCLOBENZAPRINE HCL [Concomitant]

REACTIONS (1)
  - LIVER FUNCTION TEST ABNORMAL [None]
